FAERS Safety Report 7681222-3 (Version None)
Quarter: 2011Q3

REPORT INFORMATION
  Report Type: 
  Country: None (occurrence: None)
  Receive Date: 20110810
  Receipt Date: 20110726
  Transmission Date: 20111222
  Serious: Yes (Other)
  Sender: FDA-Public Use
  Company Number: FK201101497

PATIENT
  Age: 25 Year
  Sex: Male

DRUGS (3)
  1. BEVACIZUMAB (BEVACIZUMAB) (BEVACIZUMAB) [Suspect]
     Indication: HEPATIC NEOPLASM MALIGNANT
     Dosage: 7.5 MG/KG, 14 D
  2. DOXORUBICIN HCL [Suspect]
     Indication: HEPATIC NEOPLASM MALIGNANT
     Dosage: 20 MG/M2, 14 D
  3. OXALIPLATIN [Suspect]
     Indication: HEPATIC NEOPLASM MALIGNANT
     Dosage: 75 MG/M2, 14 D

REACTIONS (5)
  - ANAEMIA [None]
  - VOMITING [None]
  - HEPATIC ENZYME INCREASED [None]
  - HYPONATRAEMIA [None]
  - HYPERCALCAEMIA [None]
